FAERS Safety Report 9798653 (Version 1)
Quarter: 2014Q1

REPORT INFORMATION
  Report Type: Spontaneous
  Country: US (occurrence: US)
  Receive Date: 20140106
  Receipt Date: 20140106
  Transmission Date: 20141002
  Serious: No
  Sender: FDA-Public Use
  Company Number: US-GILEAD-2010-0029590

PATIENT
  Sex: Female
  Weight: 101.6 kg

DRUGS (13)
  1. LETAIRIS [Suspect]
     Indication: PULMONARY ARTERIAL HYPERTENSION
     Route: 048
     Dates: start: 20090526
  2. CARDIZEM CD [Concomitant]
  3. BENICAR/HCT [Concomitant]
  4. ADCIRCA [Concomitant]
  5. DYAZIDE [Concomitant]
  6. ASPIRIN [Concomitant]
  7. CLINDAMYCIN [Concomitant]
  8. KLONOPIN [Concomitant]
  9. AMOXICILLIN [Concomitant]
  10. METHOTREXATE [Concomitant]
  11. NABUMETONE [Concomitant]
  12. FLUOXETINE [Concomitant]
  13. FOLIC ACID [Concomitant]

REACTIONS (1)
  - Syncope [Unknown]
